FAERS Safety Report 18737633 (Version 1)
Quarter: 2021Q1

REPORT INFORMATION
  Report Type: Report from Study
  Country: US (occurrence: US)
  Receive Date: 20210113
  Receipt Date: 20210113
  Transmission Date: 20210419
  Serious: Yes (Hospitalization)
  Sender: FDA-Public Use
  Company Number: US-INCYTE CORPORATION-2020IN012154

PATIENT

DRUGS (1)
  1. JAKAFI [Suspect]
     Active Substance: RUXOLITINIB
     Indication: MYELOPROLIFERATIVE NEOPLASM
     Dosage: 20 MILLIGRAM, BID
     Route: 048

REACTIONS (5)
  - Haemoglobin decreased [Recovering/Resolving]
  - Productive cough [Recovering/Resolving]
  - COVID-19 [Recovering/Resolving]
  - Off label use [Unknown]
  - Rhinorrhoea [Recovering/Resolving]

NARRATIVE: CASE EVENT DATE: 202011
